FAERS Safety Report 10021527 (Version 2)
Quarter: 2014Q1

REPORT INFORMATION
  Report Type: Spontaneous
  Country: DK (occurrence: None)
  Receive Date: 20140313
  Receipt Date: 20140327
  Transmission Date: 20141002
  Serious: Yes (Other)
  Sender: FDA-Public Use
  Company Number: 2226225

PATIENT
  Age: 48 Year
  Sex: Female

DRUGS (11)
  1. GEMCITABINE HYDROCHLORIDE [Suspect]
     Indication: PRODUCT USED FOR UNKNOWN INDICATION
     Dates: start: 20120918
  2. FLUOROURACIL [Suspect]
     Indication: PRODUCT USED FOR UNKNOWN INDICATION
     Dosage: CMF TREATMENT REGIMEN
     Dates: start: 201106, end: 20111104
  3. CYCLOPHOSPHAMIDE [Suspect]
     Indication: PRODUCT USED FOR UNKNOWN INDICATION
     Dosage: CMF TREATMENT REGIMEN
     Dates: start: 201106, end: 20111104
  4. ERIBULIN [Suspect]
     Indication: PRODUCT USED FOR UNKNOWN INDICATION
     Dates: start: 20130829
  5. TRASTUZUMAB [Suspect]
     Indication: PRODUCT USED FOR UNKNOWN INDICATION
     Dosage: IN COMBINATION WITH ERIBULIN
     Dates: start: 20130829
  6. TRASTUZUMAB [Suspect]
     Dosage: IN COMBINATION WITH ERIBULIN
     Dates: start: 20130829
  7. METHOTREXATE [Suspect]
     Indication: PRODUCT USED FOR UNKNOWN INDICATION
     Dosage: CMF TREATMENT REGIMEN
     Dates: start: 201106, end: 20111104
  8. PACLITAXEL [Suspect]
     Indication: PRODUCT USED FOR UNKNOWN INDICATION
     Dates: start: 20120110, end: 20120911
  9. CAPECITABINE [Suspect]
     Indication: PRODUCT USED FOR UNKNOWN INDICATION
     Dates: start: 201009
  10. VINORELBINE /00988503/ [Concomitant]
  11. EPIRUBICIN [Concomitant]

REACTIONS (5)
  - Hepatic steatosis [None]
  - Disease progression [None]
  - Metastases to skin [None]
  - Breast cancer [None]
  - Invasive ductal breast carcinoma [None]
